FAERS Safety Report 9778333 (Version 1)
Quarter: 2013Q4

REPORT INFORMATION
  Report Type: Spontaneous
  Country: CN (occurrence: CN)
  Receive Date: 20131223
  Receipt Date: 20131223
  Transmission Date: 20140711
  Serious: Yes (Other)
  Sender: FDA-Public Use
  Company Number: CN-JNJFOC-20131205799

PATIENT
  Sex: 0

DRUGS (1)
  1. DUROGESIC D-TRANS [Suspect]
     Indication: CANCER PAIN
     Route: 062

REACTIONS (9)
  - Respiratory depression [Unknown]
  - Somnolence [Unknown]
  - Vomiting [Unknown]
  - Nausea [Unknown]
  - Dizziness [Unknown]
  - Constipation [Unknown]
  - Skin reaction [Unknown]
  - Dysuria [Unknown]
  - Drug ineffective [Unknown]
